FAERS Safety Report 6105542-9 (Version None)
Quarter: 2009Q1

REPORT INFORMATION
  Report Type: 
  Country: None (occurrence: None)
  Receive Date: 20090306
  Receipt Date: 20090226
  Transmission Date: 20090719
  Serious: Yes (Other)
  Sender: FDA-Public Use
  Company Number: B0563258A

PATIENT
  Sex: Male

DRUGS (9)
  1. SERETIDE [Suspect]
     Indication: PRODUCTIVE COUGH
     Route: 055
  2. SALAMOL [Concomitant]
     Indication: PRODUCTIVE COUGH
     Route: 055
  3. PRAVASTATIN [Concomitant]
     Dosage: 10MG UNKNOWN
     Route: 065
  4. FERROUS SULFATE TAB [Concomitant]
     Dosage: 200MG UNKNOWN
     Route: 065
  5. DYAZIDE [Concomitant]
  6. RANITIDINE [Concomitant]
     Dosage: 300MG UNKNOWN
  7. LANSOPRAZOLE [Concomitant]
     Dosage: 300MG UNKNOWN
     Route: 065
  8. VOLTAROL EMULGEL [Concomitant]
  9. DIGOXIN [Concomitant]
     Dosage: 125MCG UNKNOWN
     Route: 065

REACTIONS (8)
  - CHOKING [None]
  - COUGH [None]
  - DECREASED APPETITE [None]
  - DYSGEUSIA [None]
  - DYSPNOEA [None]
  - INCREASED UPPER AIRWAY SECRETION [None]
  - VOMITING [None]
  - WEIGHT DECREASED [None]
